FAERS Safety Report 25077744 (Version 1)
Quarter: 2025Q1

REPORT INFORMATION
  Report Type: Spontaneous
  Country: EG (occurrence: EG)
  Receive Date: 20250314
  Receipt Date: 20250314
  Transmission Date: 20250408
  Serious: Yes (Death, Hospitalization)
  Sender: ROCHE
  Company Number: EG-ROCHE-10000229454

PATIENT
  Age: 35 Year
  Sex: Male

DRUGS (1)
  1. OCREVUS [Suspect]
     Active Substance: OCRELIZUMAB
     Indication: Product used for unknown indication
     Route: 065

REACTIONS (9)
  - Death [Fatal]
  - Lower respiratory tract infection [Unknown]
  - Acute kidney injury [Unknown]
  - Shock [Unknown]
  - Acute respiratory distress syndrome [Unknown]
  - Hypoxia [Unknown]
  - Dyspnoea [Unknown]
  - Sedation [Unknown]
  - Paralysis [Unknown]

NARRATIVE: CASE EVENT DATE: 20250301
